FAERS Safety Report 16384830 (Version 4)
Quarter: 2019Q3

REPORT INFORMATION
  Report Type: Report from Study
  Country: US (occurrence: US)
  Receive Date: 20190603
  Receipt Date: 20190826
  Transmission Date: 20191004
  Serious: Yes (Hospitalization, Other)
  Sender: FDA-Public Use
  Company Number: US-JNJFOC-20190542815

PATIENT
  Age: 96 Year
  Sex: Female

DRUGS (2)
  1. IMBRUVICA [Suspect]
     Active Substance: IBRUTINIB
     Route: 048
     Dates: start: 20190525
  2. IMBRUVICA [Suspect]
     Active Substance: IBRUTINIB
     Indication: CHRONIC LYMPHOCYTIC LEUKAEMIA
     Route: 048
     Dates: start: 20190328

REACTIONS (8)
  - Neck pain [Unknown]
  - Urinary tract infection staphylococcal [Unknown]
  - Contusion [Unknown]
  - Depression [Recovering/Resolving]
  - Product dose omission [Unknown]
  - Haemarthrosis [Unknown]
  - Fall [Unknown]
  - Blood electrolytes increased [Unknown]

NARRATIVE: CASE EVENT DATE: 20190526
